FAERS Safety Report 6445645-2 (Version None)
Quarter: 2009Q4

REPORT INFORMATION
  Report Type: 
  Country: None (occurrence: None)
  Receive Date: 20091118
  Receipt Date: 20091118
  Transmission Date: 20100525
  Serious: Yes (Other)
  Sender: FDA-Public Use
  Company Number: None

PATIENT
  Sex: Female
  Weight: 72.7 kg

DRUGS (1)
  1. LAMICTAL [Suspect]
     Indication: DEPRESSION
     Dosage: 25MG BID ORAL
     Route: 048

REACTIONS (5)
  - NASAL DISORDER [None]
  - RASH [None]
  - STOMATITIS [None]
  - SWOLLEN TONGUE [None]
  - URTICARIA [None]
